FAERS Safety Report 8251273-9 (Version None)
Quarter: 2012Q1

REPORT INFORMATION
  Report Type: 
  Country: None (occurrence: None)
  Receive Date: 20120328
  Receipt Date: 20120315
  Transmission Date: 20120608
  Serious: Yes (Hospitalization)
  Sender: FDA-Public Use
  Company Number: 2012AT000124

PATIENT
  Age: 33 Year
  Sex: Male

DRUGS (8)
  1. TRAMADOL HCL [Concomitant]
  2. DANTRIUM [Concomitant]
  3. OXYBUTYNINE HCL [Concomitant]
  4. ARIXTRA [Concomitant]
  5. EDEX [Suspect]
     Indication: PRODUCT USED FOR UNKNOWN INDICATION
     Dosage: 10 UG;1X;ICAN 5 UG;1X;ICAN
     Dates: start: 20120113, end: 20120113
  6. EDEX [Suspect]
     Indication: PRODUCT USED FOR UNKNOWN INDICATION
     Dosage: 10 UG;1X;ICAN 5 UG;1X;ICAN
     Dates: start: 20111205, end: 20111205
  7. TARDYFERON /00023503/ [Concomitant]
  8. BACLOFEN [Concomitant]

REACTIONS (15)
  - RECTAL ULCER [None]
  - PYREXIA [None]
  - METABOLIC ACIDOSIS [None]
  - SEPTIC SHOCK [None]
  - HEADACHE [None]
  - CIRCULATORY COLLAPSE [None]
  - GASTRIC ULCER [None]
  - ABDOMINAL PAIN [None]
  - DIARRHOEA [None]
  - WEIGHT DECREASED [None]
  - PNEUMATOSIS [None]
  - INTESTINAL ISCHAEMIA [None]
  - COLITIS ULCERATIVE [None]
  - RENAL FAILURE ACUTE [None]
  - ASCITES [None]
